FAERS Safety Report 16581593 (Version 2)
Quarter: 2019Q3

REPORT INFORMATION
  Report Type: Spontaneous
  Country: IT (occurrence: IT)
  Receive Date: 20190716
  Receipt Date: 20190812
  Transmission Date: 20191004
  Serious: Yes (Death)
  Sender: FDA-Public Use
  Company Number: IT-B.I. PHARMACEUTICALS,INC./RIDGEFIELD-2019-BI-029695

PATIENT
  Age: 46 Year
  Sex: Male

DRUGS (6)
  1. VARGATEF [Suspect]
     Active Substance: NINTEDANIB
     Route: 065
     Dates: start: 20160926, end: 20170216
  2. VARGATEF [Suspect]
     Active Substance: NINTEDANIB
     Indication: CHEMOTHERAPY
     Route: 065
     Dates: start: 20151221
  3. VARGATEF [Suspect]
     Active Substance: NINTEDANIB
     Route: 065
     Dates: start: 20160115, end: 20160226
  4. VARGATEF [Suspect]
     Active Substance: NINTEDANIB
     Route: 065
     Dates: start: 20160414
  5. DOCETAXEL. [Suspect]
     Active Substance: DOCETAXEL
     Indication: CHEMOTHERAPY
     Dosage: 75 MG/MQ
     Route: 065
     Dates: start: 20151109, end: 20151130
  6. DOCETAXEL. [Suspect]
     Active Substance: DOCETAXEL
     Dosage: STRENGTH - 75 MG/MQ
     Route: 065
     Dates: start: 20160115, end: 20160226

REACTIONS (5)
  - Gastrointestinal toxicity [Recovered/Resolved]
  - Haematotoxicity [Recovered/Resolved]
  - Lung neoplasm malignant [Fatal]
  - Neurotoxicity [Not Recovered/Not Resolved]
  - Gastrointestinal toxicity [Recovered/Resolved]

NARRATIVE: CASE EVENT DATE: 201601
